FAERS Safety Report 5887661-5 (Version None)
Quarter: 2008Q3

REPORT INFORMATION
  Report Type: 
  Country: None (occurrence: None)
  Receive Date: 20080916
  Receipt Date: 20080906
  Transmission Date: 20090109
  Serious: Yes (Other)
  Sender: FDA-Public Use
  Company Number: CHPA2008US14854

PATIENT
  Age: 67 Year

DRUGS (2)
  1. BENEFIBER W/ WHEAT DEXTRIN (NCH) (WHEAT DEXTRIN) POWDER [Suspect]
     Indication: MEDICAL DIET
     Dosage: 2 TSP, QD, ORAL
     Route: 048
     Dates: start: 20080801
  2. DRUG THERAPY NOS (DRUG THERAPY NOS) [Suspect]
     Dosage: QD, ORAL
     Route: 048

REACTIONS (3)
  - DOCUMENTED HYPERSENSITIVITY TO ADMINISTERED DRUG [None]
  - LYMPH NODE PAIN [None]
  - NEUROPATHY PERIPHERAL [None]
